FAERS Safety Report 12294209 (Version 1)
Quarter: 2016Q2

REPORT INFORMATION
  Report Type: Spontaneous
  Country: US (occurrence: US)
  Receive Date: 20160422
  Receipt Date: 20160422
  Transmission Date: 20160815
  Serious: No
  Sender: FDA-Public Use
  Company Number: US-ASTRAZENECA-2016SE39966

PATIENT
  Age: 880 Month
  Sex: Female
  Weight: 92.5 kg

DRUGS (1)
  1. BYDUREON [Suspect]
     Active Substance: EXENATIDE
     Indication: BLOOD GLUCOSE ABNORMAL
     Route: 058
     Dates: start: 201506

REACTIONS (2)
  - Sinusitis [Unknown]
  - Hypoacusis [Unknown]

NARRATIVE: CASE EVENT DATE: 201601
